FAERS Safety Report 20118694 (Version 2)
Quarter: 2022Q1

REPORT INFORMATION
  Report Type: Spontaneous
  Country: DE (occurrence: DE)
  Receive Date: 20211126
  Receipt Date: 20220209
  Transmission Date: 20220423
  Serious: Yes (Hospitalization, Disabling, Other)
  Sender: FDA-Public Use
  Company Number: DE-Accord-245851

PATIENT
  Age: 26 Year
  Sex: Female

DRUGS (1)
  1. FINGOLIMOD [Suspect]
     Active Substance: FINGOLIMOD
     Indication: Multiple sclerosis relapse
     Route: 048

REACTIONS (9)
  - Lymphopenia [Recovering/Resolving]
  - Apathy [Recovering/Resolving]
  - Affect lability [Recovering/Resolving]
  - Aphasia [Recovering/Resolving]
  - Psychomotor hyperactivity [Recovering/Resolving]
  - Hemiparesis [Recovering/Resolving]
  - Loss of personal independence in daily activities [Recovering/Resolving]
  - Tumefactive multiple sclerosis [Recovering/Resolving]
  - Rebound effect [Recovering/Resolving]
